FAERS Safety Report 24302485 (Version 1)
Quarter: 2024Q3

REPORT INFORMATION
  Report Type: Spontaneous
  Country: US (occurrence: US)
  Receive Date: 20240910
  Receipt Date: 20240910
  Transmission Date: 20241017
  Serious: No
  Sender: INCYTE
  Company Number: US-INCYTE CORPORATION-2024IN009238

PATIENT

DRUGS (2)
  1. JAKAFI [Suspect]
     Active Substance: RUXOLITINIB
     Dosage: 5MG TO 10MG
     Route: 048
  2. JAKAFI [Suspect]
     Active Substance: RUXOLITINIB
     Dosage: 5 MILLIGRAM, BID ON SUNDAY, TUESDAY, AND THURSDAY,THEN  10MG TWICE DAILY ON THE OTHER DAYS OF THE WE
     Route: 048

REACTIONS (2)
  - Infection [Unknown]
  - Product prescribing issue [Unknown]
